FAERS Safety Report 7295056-5 (Version None)
Quarter: 2011Q1

REPORT INFORMATION
  Report Type: 
  Country: None (occurrence: None)
  Receive Date: 20110211
  Receipt Date: 20110211
  Transmission Date: 20110831
  Serious: Yes (Other)
  Sender: FDA-Public Use
  Company Number: None

PATIENT
  Sex: Female
  Weight: 81.6475 kg

DRUGS (1)
  1. GENERIC ORTHOCYCLEN [Suspect]
     Indication: CONTRACEPTION
     Dosage: EVERY DAY
     Dates: start: 20060101, end: 20070101

REACTIONS (1)
  - METRORRHAGIA [None]
